FAERS Safety Report 7414841-X (Version None)
Quarter: 2011Q2

REPORT INFORMATION
  Report Type: 
  Country: None (occurrence: None)
  Receive Date: 20110414
  Receipt Date: 20110405
  Transmission Date: 20111010
  Serious: Yes (Death, Hospitalization, Other)
  Sender: FDA-Public Use
  Company Number: US-PFIZER INC-2011076347

PATIENT
  Sex: Male

DRUGS (26)
  1. MAGNESIUM OXIDE [Concomitant]
     Dosage: UNK
  2. XANAX [Concomitant]
     Dosage: UNK
  3. CELEXA [Concomitant]
     Dosage: 20 MG/EVENING
  4. METOPROLOL [Concomitant]
     Dosage: 25 MG, UNK
  5. REVATIO [Concomitant]
     Dosage: 40 MG, 3X/DAY
  6. DARVOCET [Concomitant]
     Dosage: UNK
  7. SOMAVERT [Suspect]
     Dosage: 20 MG, 1X/DAY
     Dates: start: 20090109
  8. PERSANTINE [Concomitant]
     Dosage: 75 MG, 3X/DAY
  9. AMIODARONE [Concomitant]
     Dosage: 200 MG, 1X/DAY
  10. CELEXA [Concomitant]
     Dosage: 40 MG, UNK
  11. CEFEPIME [Concomitant]
     Dosage: 3 G, 2X/DAY
  12. VANCOMYCIN [Concomitant]
     Dosage: 250 MG, UNK
  13. VITAMIN D [Concomitant]
  14. K-DUR [Concomitant]
     Dosage: 20 MEQ, UNK
  15. CALTRATE + D [Concomitant]
  16. SOMAVERT [Suspect]
     Indication: ACROMEGALY
     Dosage: 10 MG, 1X/DAY
     Route: 058
     Dates: start: 20081021, end: 20090108
  17. SOMATULINE DEPOT [Suspect]
     Indication: ACROMEGALY
     Dosage: 120 MG, MONTHLY
     Route: 030
     Dates: start: 20080715
  18. ACETYLSALICYLIC ACID [Concomitant]
     Dosage: 325 MG, 1X/DAY
  19. PRILOSEC [Concomitant]
     Dosage: 20 MG, 1X/DAY
  20. WARFARIN SODIUM [Concomitant]
     Dosage: 7.5 MG, EVERY EVENING
  21. LOPRESSOR [Concomitant]
     Dosage: UNK
  22. LASIX [Concomitant]
     Dosage: 40 MG, UNK
  23. HYDROCORTISONE [Concomitant]
     Dosage: 20 MG IN AM, 10 MG IN AFTERNOON
  24. CYMBALTA [Concomitant]
     Dosage: 90 MG, EVERY MORNING
  25. FLAGYL [Concomitant]
     Dosage: 500 MG, 3X/DAY
  26. WARFARIN SODIUM [Concomitant]
     Dosage: 5 MG, UNK

REACTIONS (6)
  - SEPSIS [None]
  - CARDIAC FAILURE CONGESTIVE [None]
  - RECTAL HAEMORRHAGE [None]
  - BACTERAEMIA [None]
  - PLATELET COUNT DECREASED [None]
  - GASTROINTESTINAL HAEMORRHAGE [None]
